FAERS Safety Report 5944878-9 (Version None)
Quarter: 2008Q4

REPORT INFORMATION
  Report Type: 
  Country: None (occurrence: None)
  Receive Date: 20081021
  Receipt Date: 20080327
  Transmission Date: 20090506
  Serious: Yes (Life-Threatening, Other)
  Sender: FDA-Public Use
  Company Number: HQWYE050812AUG03

PATIENT
  Age: 68 Year
  Sex: Female

DRUGS (3)
  1. PREMARIN [Suspect]
     Indication: OESTROGEN REPLACEMENT THERAPY
     Dosage: DAILY, ORAL FOR A NUMBER OF YEARS
     Route: 048
  2. PREMPRO [Suspect]
  3. PROVERA [Suspect]

REACTIONS (1)
  - UTERINE CANCER [None]
